FAERS Safety Report 9360584 (Version 1)
Quarter: 2013Q2

REPORT INFORMATION
  Report Type: Spontaneous
  Country: US (occurrence: None)
  Receive Date: 20130620
  Receipt Date: 20130620
  Transmission Date: 20140414
  Serious: Yes (Other)
  Sender: FDA-Public Use
  Company Number: None

PATIENT
  Age: 62 Year
  Sex: Male

DRUGS (1)
  1. HYDROXYCHLOROQUINE [Suspect]

REACTIONS (8)
  - Rash [None]
  - Odynophagia [None]
  - Skin exfoliation [None]
  - Haemorrhage [None]
  - Drug eruption [None]
  - Rash pustular [None]
  - Erythema multiforme [None]
  - Stevens-Johnson syndrome [None]
